FAERS Safety Report 16816166 (Version 1)
Quarter: 2019Q4

REPORT INFORMATION
  Report Type: Spontaneous
  Country: US (occurrence: US)
  Receive Date: 20190917
  Receipt Date: 20190917
  Transmission Date: 20200122
  Serious: Yes (Hospitalization)
  Sender: FDA-Public Use
  Company Number: None

PATIENT
  Age: 74 Year
  Sex: Female

DRUGS (5)
  1. RISPERIDONE 0.25MG [Concomitant]
     Active Substance: RISPERIDONE
     Dates: start: 20181003
  2. LOPERAMIDE 2MG [Concomitant]
     Active Substance: LOPERAMIDE
     Dates: start: 20181003
  3. ZOFRAN [Concomitant]
     Active Substance: ONDANSETRON HYDROCHLORIDE
     Dates: start: 20181003
  4. IMATINIB. [Suspect]
     Active Substance: IMATINIB MESYLATE
     Indication: GASTROINTESTINAL NEOPLASM
     Route: 048
     Dates: start: 20181227
  5. ESCITALOPRAM 10MG [Concomitant]
     Active Substance: ESCITALOPRAM OXALATE
     Dates: start: 20181003

REACTIONS (3)
  - Peripheral swelling [None]
  - Pelvic pain [None]
  - Abdominal distension [None]

NARRATIVE: CASE EVENT DATE: 20190701
